FAERS Safety Report 25674638 (Version 1)
Quarter: 2025Q3

REPORT INFORMATION
  Report Type: Spontaneous
  Country: EU (occurrence: EU)
  Receive Date: 20250813
  Receipt Date: 20250813
  Transmission Date: 20251021
  Serious: Yes (Congenital Anomaly)
  Sender: RANBAXY
  Company Number: EU-SUN PHARMACEUTICAL INDUSTRIES LTD-2025RR-521473

PATIENT
  Sex: Female
  Weight: 3.15 kg

DRUGS (10)
  1. VENLAFAXINE [Suspect]
     Active Substance: VENLAFAXINE HYDROCHLORIDE
     Indication: Anxiety disorder
     Dosage: 225 MILLIGRAM, DAILY
     Route: 064
     Dates: start: 202010, end: 202106
  2. VENLAFAXINE [Suspect]
     Active Substance: VENLAFAXINE HYDROCHLORIDE
     Dosage: 150 MILLIGRAM, DAILY
     Route: 064
     Dates: start: 202106, end: 202107
  3. Doppelherz [Concomitant]
     Indication: Prophylaxis of neural tube defect
     Dosage: 0.8 MILLIGRAM, DAILY
     Route: 064
     Dates: start: 202010, end: 202012
  4. IBUPROFEN [Concomitant]
     Active Substance: IBUPROFEN
     Indication: Pain
     Route: 064
  5. VAXIGRIPTETRA [Concomitant]
     Active Substance: INFLUENZA VIRUS VACCINE QUADRIVALENT TYPE A+B
     Indication: Immunisation
     Route: 064
     Dates: start: 202101, end: 202101
  6. NIFEDIPINE [Concomitant]
     Active Substance: NIFEDIPINE
     Indication: Pre-eclampsia
     Route: 064
     Dates: start: 202107, end: 202107
  7. LEVOTHYROXINE SODIUM [Concomitant]
     Active Substance: LEVOTHYROXINE SODIUM
     Indication: Hypothyroidism
     Dosage: 75 MICROGRAM, DAILY
     Route: 064
     Dates: start: 202010, end: 202107
  8. ASPIRIN\PSEUDOEPHEDRINE HYDROCHLORIDE [Concomitant]
     Active Substance: ASPIRIN\PSEUDOEPHEDRINE HYDROCHLORIDE
     Indication: Pain
     Route: 064
  9. BOOSTRIX [Concomitant]
     Active Substance: TETANUS TOXOID, REDUCED DIPHTHERIA TOXOID AND ACELLULAR PERTUSSIS VACCINE ADSORBED, TDAP
     Indication: Immunisation
     Route: 064
     Dates: start: 202106, end: 202106
  10. ACETAMINOPHEN [Concomitant]
     Active Substance: ACETAMINOPHEN
     Indication: Pain
     Route: 064

REACTIONS (2)
  - Microcephaly [Unknown]
  - Foetal exposure during pregnancy [Unknown]
